FAERS Safety Report 23989046 (Version 3)
Quarter: 2024Q2

REPORT INFORMATION
  Report Type: Report from Study
  Country: US (occurrence: US)
  Receive Date: 20240619
  Receipt Date: 20240627
  Transmission Date: 20240716
  Serious: No
  Sender: FDA-Public Use
  Company Number: US-AMGEN-USASP2024120101

PATIENT
  Age: 62 Year
  Sex: Female

DRUGS (1)
  1. REPATHA [Suspect]
     Active Substance: EVOLOCUMAB
     Indication: Blood cholesterol increased
     Dosage: 140 MILLIGRAM/ML, Q2WK
     Route: 065

REACTIONS (6)
  - Circumstance or information capable of leading to medication error [Unknown]
  - Device difficult to use [Unknown]
  - Product storage error [Unknown]
  - Accidental exposure to product [Unknown]
  - Product communication issue [Unknown]
  - Sluggishness [Unknown]

NARRATIVE: CASE EVENT DATE: 20240609
